FAERS Safety Report 10059329 (Version 2)
Quarter: 2014Q3

REPORT INFORMATION
  Report Type: Spontaneous
  Country: US (occurrence: US)
  Receive Date: 20140404
  Receipt Date: 20140812
  Transmission Date: 20150326
  Serious: Yes (Other)
  Sender: FDA-Public Use
  Company Number: US-BAYER-2014-048905

PATIENT
  Age: 40 Year
  Sex: Female

DRUGS (2)
  1. MIRENA [Suspect]
     Active Substance: LEVONORGESTREL
     Dosage: 20 MCG/24HR, CONT
     Route: 015
     Dates: start: 20070108, end: 20120503
  2. MIRENA [Suspect]
     Active Substance: LEVONORGESTREL
     Dosage: 20 MCG/24HR, CONT
     Route: 015
     Dates: start: 20120503, end: 20130618

REACTIONS (17)
  - Injury [None]
  - Vertigo [None]
  - Vitreous floaters [None]
  - Photophobia [None]
  - Uterine perforation [None]
  - Papilloedema [None]
  - Visual impairment [None]
  - Pain [None]
  - Vision blurred [None]
  - Visual field defect [None]
  - Benign intracranial hypertension [None]
  - Tinnitus [None]
  - Migraine [None]
  - Neck pain [None]
  - Intracranial pressure increased [None]
  - Dizziness [None]
  - Headache [None]
